FAERS Safety Report 5718802-8 (Version None)
Quarter: 2008Q2

REPORT INFORMATION
  Report Type: 
  Country: None (occurrence: None)
  Receive Date: 20080425
  Receipt Date: 20080331
  Transmission Date: 20081010
  Serious: No
  Sender: FDA-Public Use
  Company Number: US-BOEHRINGER INGELHEIM GMBH, GERMANY-2008-BP-04960BP

PATIENT
  Age: 59 Year
  Sex: Female

DRUGS (4)
  1. ZANTAC 75 [Suspect]
     Indication: DYSPEPSIA
     Dates: start: 20080320
  2. SYNTHROID [Concomitant]
     Route: 048
  3. ANTIVERT [Concomitant]
     Indication: MENIERE'S DISEASE
     Route: 048
  4. VALIUM [Concomitant]
     Indication: MENIERE'S DISEASE
     Route: 048

REACTIONS (2)
  - DIZZINESS [None]
  - TACHYCARDIA [None]
